FAERS Safety Report 8226013-X (Version None)
Quarter: 2012Q1

REPORT INFORMATION
  Report Type: 
  Country: None (occurrence: None)
  Receive Date: 20120321
  Receipt Date: 20120316
  Transmission Date: 20120608
  Serious: No
  Sender: FDA-Public Use
  Company Number: US-PFIZER INC-2012070121

PATIENT
  Age: 56 Year
  Sex: Male
  Weight: 81.6 kg

DRUGS (4)
  1. TOPAMAX [Concomitant]
     Dosage: 150 MG, 2X/DAY
  2. TYLENOL [Concomitant]
     Indication: HEADACHE
     Dosage: UNK, AS NEEDED
  3. KEPPRA [Concomitant]
     Dosage: 150 MG, 2X/DAY
  4. LYRICA [Suspect]
     Indication: GRAND MAL CONVULSION
     Dosage: 75 MG, 2X/DAY
     Dates: start: 20120315

REACTIONS (6)
  - HYPOAESTHESIA ORAL [None]
  - MEMORY IMPAIRMENT [None]
  - LIP SWELLING [None]
  - DISTURBANCE IN ATTENTION [None]
  - HYPOAESTHESIA [None]
  - OEDEMA PERIPHERAL [None]
